FAERS Safety Report 5052086-1 (Version None)
Quarter: 2006Q3

REPORT INFORMATION
  Report Type: 
  Country: None (occurrence: None)
  Receive Date: 20060711
  Receipt Date: 20060704
  Transmission Date: 20061208
  Serious: Yes (Hospitalization)
  Sender: FDA-Public Use
  Company Number: ATWYE967004JUL06

PATIENT
  Sex: Male

DRUGS (1)
  1. EFECTIN (VENLAFAXINE HYDROCHLORIDE, UNSPEC, 0) [Suspect]

REACTIONS (1)
  - CEREBRAL HAEMORRHAGE [None]
